FAERS Safety Report 8129718-4 (Version None)
Quarter: 2012Q1

REPORT INFORMATION
  Report Type: 
  Country: None (occurrence: None)
  Receive Date: 20120210
  Receipt Date: 20120130
  Transmission Date: 20120608
  Serious: Yes (Death, Life-Threatening, Hospitalization)
  Sender: FDA-Public Use
  Company Number: JP-MYLANLABS-2012S1000677

PATIENT
  Age: 75 Year
  Sex: Male
  Weight: 52 kg

DRUGS (4)
  1. URSO /00465701/ [Concomitant]
     Indication: CHRONIC HEPATITIS
     Dates: start: 20110101, end: 20120102
  2. AMLODIPINE [Concomitant]
     Indication: HYPERTENSION
     Dates: start: 20110101, end: 20120102
  3. BICALUTAMIDE [Suspect]
     Indication: PROSTATE CANCER
     Route: 048
     Dates: start: 20111201, end: 20120102
  4. FLIVAS [Suspect]
     Indication: PROSTATE CANCER
     Route: 048
     Dates: start: 20111201, end: 20120102

REACTIONS (2)
  - CONDITION AGGRAVATED [None]
  - PNEUMONIA PRIMARY ATYPICAL [None]
